FAERS Safety Report 19285953 (Version 1)
Quarter: 2021Q2

REPORT INFORMATION
  Report Type: Spontaneous
  Country: US (occurrence: US)
  Receive Date: 20210521
  Receipt Date: 20210521
  Transmission Date: 20210717
  Serious: No
  Sender: FDA-Public Use
  Company Number: US-RADIUS HEALTH INC.-2020US002624

PATIENT
  Sex: Female

DRUGS (3)
  1. TYMLOS [Suspect]
     Active Substance: ABALOPARATIDE
     Indication: OSTEOPOROSIS
     Dosage: 80 MCG, DAILY
     Route: 058
     Dates: start: 20200613
  2. IBUPROFEN. [Concomitant]
     Active Substance: IBUPROFEN
     Indication: PAIN IN EXTREMITY
     Dosage: UNK
     Dates: start: 20200617
  3. IBUPROFEN. [Concomitant]
     Active Substance: IBUPROFEN
     Indication: PERIPHERAL SWELLING

REACTIONS (5)
  - Arthropathy [Recovering/Resolving]
  - Product quality issue [Unknown]
  - Neck pain [Recovering/Resolving]
  - Product storage error [Unknown]
  - Nausea [Unknown]
